FAERS Safety Report 5112996-3 (Version None)
Quarter: 2006Q3

REPORT INFORMATION
  Report Type: 
  Country: None (occurrence: None)
  Receive Date: 20060921
  Receipt Date: 20060921
  Transmission Date: 20061208
  Serious: Yes (Other)
  Sender: FDA-Public Use
  Company Number: None

PATIENT
  Sex: Male

DRUGS (8)
  1. OMEPRAZOLE [Suspect]
     Dosage: 40 MG DAILY PO
     Route: 048
     Dates: start: 20050919, end: 20060707
  2. MULTI-VITAMIN [Concomitant]
  3. SERTRALINE [Concomitant]
  4. LITHIUM CARBONATE [Concomitant]
  5. FISH OIL [Concomitant]
  6. ASPIRIN [Concomitant]
  7. LEVOTHYROXINE SODIUM [Concomitant]
  8. POTASSIUM CHLORIDE [Concomitant]

REACTIONS (1)
  - BLOOD CREATININE INCREASED [None]
